FAERS Safety Report 25981439 (Version 1)
Quarter: 2025Q4

REPORT INFORMATION
  Report Type: Spontaneous
  Country: US (occurrence: US)
  Receive Date: 20251030
  Receipt Date: 20251030
  Transmission Date: 20260117
  Serious: Yes (Death, Hospitalization, Other)
  Sender: ELI LILLY AND COMPANY
  Company Number: US-ELI_LILLY_AND_COMPANY-US202510028576

PATIENT
  Age: 71 Year
  Sex: Male

DRUGS (3)
  1. PIRTOBRUTINIB [Suspect]
     Active Substance: PIRTOBRUTINIB
     Indication: Mantle cell lymphoma
     Dosage: UNK, UNKNOWN
     Route: 065
  2. OBINUTUZUMAB [Suspect]
     Active Substance: OBINUTUZUMAB
     Indication: Mantle cell lymphoma
     Dosage: UNK UNK, UNKNOWN
     Route: 065
     Dates: start: 2024
  3. METHOTREXATE [Concomitant]
     Active Substance: METHOTREXATE
     Indication: Mantle cell lymphoma
     Dosage: UNK, UNKNOWN
     Route: 037

REACTIONS (3)
  - Encephalitis cytomegalovirus [Fatal]
  - Cytomegalovirus colitis [Unknown]
  - Renal impairment [Unknown]

NARRATIVE: CASE EVENT DATE: 20240901
